FAERS Safety Report 8824790 (Version 2)
Quarter: 2012Q4

REPORT INFORMATION
  Report Type: Report from Study
  Country: US (occurrence: US)
  Receive Date: 20121004
  Receipt Date: 20121106
  Transmission Date: 20130627
  Serious: Yes (Hospitalization)
  Sender: FDA-Public Use
  Company Number: US-JNJFOC-20121001853

PATIENT
  Age: 19 Year
  Sex: Female
  Weight: 30.44 kg

DRUGS (5)
  1. REMICADE [Suspect]
     Indication: CROHN^S DISEASE
     Route: 042
     Dates: start: 20060607, end: 20070829
  2. 5-ASA [Concomitant]
  3. METHOTREXATE [Concomitant]
  4. PREVACID [Concomitant]
  5. PROZAC [Concomitant]

REACTIONS (1)
  - Cholelithiasis [Recovered/Resolved]
